FAERS Safety Report 17339984 (Version 2)
Quarter: 2020Q1

REPORT INFORMATION
  Report Type: Spontaneous
  Country: DE (occurrence: DE)
  Receive Date: 20200129
  Receipt Date: 20200212
  Transmission Date: 20200409
  Serious: Yes (Other)
  Sender: FDA-Public Use
  Company Number: DE-TORRENT-00016664

PATIENT
  Age: 73 Year
  Sex: Female
  Weight: 98 kg

DRUGS (3)
  1. ROSUVASTATIN. [Suspect]
     Active Substance: ROSUVASTATIN
     Indication: LIPID METABOLISM DISORDER
     Dates: start: 2017, end: 2018
  2. ATORVASTATIN [Suspect]
     Active Substance: ATORVASTATIN
     Indication: TYPE IIA HYPERLIPIDAEMIA
     Dates: start: 2018
  3. EZETIMIB [Suspect]
     Active Substance: EZETIMIBE
     Indication: TYPE IIA HYPERLIPIDAEMIA
     Dates: start: 2018, end: 20191211

REACTIONS (15)
  - Polyneuropathy [Unknown]
  - Ocular hyperaemia [Unknown]
  - Diarrhoea [Recovered/Resolved with Sequelae]
  - Obesity [Recovered/Resolved with Sequelae]
  - Nasopharyngitis [Recovered/Resolved with Sequelae]
  - Musculoskeletal pain [Recovered/Resolved with Sequelae]
  - Lymphoedema [Unknown]
  - Mucosal inflammation [Recovered/Resolved with Sequelae]
  - Condition aggravated [Unknown]
  - Oedema [Recovered/Resolved with Sequelae]
  - Dyspnoea [Recovered/Resolved with Sequelae]
  - Peripheral swelling [Recovered/Resolved with Sequelae]
  - Headache [Recovered/Resolved with Sequelae]
  - Malaise [Unknown]
  - Hypertension [Unknown]
